FAERS Safety Report 5083314-4 (Version None)
Quarter: 2006Q3

REPORT INFORMATION
  Report Type: 
  Country: None (occurrence: None)
  Receive Date: 20060818
  Receipt Date: 20060331
  Transmission Date: 20061208
  Serious: Yes (Hospitalization, Other)
  Sender: FDA-Public Use
  Company Number: US-BAYER-200612239BWH

PATIENT
  Age: 73 Year
  Sex: Male
  Weight: 91 kg

DRUGS (9)
  1. NEXAVAR [Suspect]
     Indication: RENAL CELL CARCINOMA STAGE UNSPECIFIED
     Dosage: TOTAL DAILY DOSE: 800 MG  UNIT DOSE: 200 MG
     Route: 048
     Dates: start: 20060401, end: 20060426
  2. ATENOLOL [Concomitant]
  3. METHOTREXATE [Concomitant]
     Dosage: UNIT DOSE: 2.5 MG
  4. PREDNISONE [Concomitant]
  5. SILDENAFIL CITRATE [Concomitant]
     Route: 048
  6. FOLIC ACID [Concomitant]
  7. ZOFRAN [Concomitant]
  8. METOPROLOL [Concomitant]
  9. DEXAMETHASONE [Concomitant]

REACTIONS (18)
  - ABDOMINAL PAIN [None]
  - ABDOMINAL PAIN LOWER [None]
  - BLOOD PRESSURE INCREASED [None]
  - CLOSTRIDIAL INFECTION [None]
  - DISORIENTATION [None]
  - DIVERTICULAR PERFORATION [None]
  - FATIGUE [None]
  - FLUSHING [None]
  - HEART RATE INCREASED [None]
  - HYPOTENSION [None]
  - INCOHERENT [None]
  - METASTASES TO LUNG [None]
  - NAUSEA [None]
  - PAIN IN EXTREMITY [None]
  - PYREXIA [None]
  - SUPRAVENTRICULAR TACHYCARDIA [None]
  - VOMITING [None]
  - WEIGHT DECREASED [None]
